FAERS Safety Report 9563934 (Version 1)
Quarter: 2013Q3

REPORT INFORMATION
  Report Type: Spontaneous
  Country: CA (occurrence: CA)
  Receive Date: 20130928
  Receipt Date: 20130928
  Transmission Date: 20140515
  Serious: Yes (Hospitalization)
  Sender: FDA-Public Use
  Company Number: CA-ROCHE-1279839

PATIENT
  Age: 60 Year
  Sex: Male
  Weight: 84 kg

DRUGS (8)
  1. PEGASYS [Suspect]
     Indication: PRODUCT USED FOR UNKNOWN INDICATION
     Dosage: THERAPY DURATION: 69.0 DAYS
     Route: 058
  2. PEGASYS [Suspect]
     Dosage: THERAPY DURATION: 69 DAYS
     Route: 048
  3. RIBAVIRIN [Suspect]
     Indication: PRODUCT USED FOR UNKNOWN INDICATION
     Dosage: THERAPY DURATION: 69.0 DAYS
     Route: 048
  4. RIBAVIRIN [Suspect]
     Dosage: THERAPY DURATION: 69 DAYS
     Route: 048
  5. COUMADIN [Concomitant]
     Route: 065
  6. FLAGYL [Concomitant]
     Route: 065
  7. METHADONE [Concomitant]
     Route: 065
  8. PROZAC [Concomitant]
     Route: 065

REACTIONS (5)
  - Deep vein thrombosis [Unknown]
  - Hydronephrosis [Unknown]
  - Nephrolithiasis [Unknown]
  - Pulmonary embolism [Unknown]
  - Sepsis [Unknown]
